FAERS Safety Report 10154311 (Version 2)
Quarter: 2014Q2

REPORT INFORMATION
  Report Type: Spontaneous
  Country: CA (occurrence: CA)
  Receive Date: 20140506
  Receipt Date: 20140522
  Transmission Date: 20141212
  Serious: Yes (Other)
  Sender: FDA-Public Use
  Company Number: CA-ASTRAZENECA-2014SE29178

PATIENT
  Age: 22 Year
  Sex: Female

DRUGS (3)
  1. NEXIUM [Suspect]
     Indication: GASTROOESOPHAGEAL REFLUX DISEASE
     Route: 048
     Dates: start: 201311, end: 201312
  2. NEXIUM [Suspect]
     Indication: GASTROOESOPHAGEAL REFLUX DISEASE
     Route: 048
     Dates: start: 201404
  3. DIANE [Concomitant]
     Indication: ORAL CONTRACEPTION
     Dosage: 35, ONCE A DAY
     Route: 048
     Dates: start: 2009

REACTIONS (1)
  - Metrorrhagia [Not Recovered/Not Resolved]
